FAERS Safety Report 7036079-0 (Version None)
Quarter: 2010Q4

REPORT INFORMATION
  Report Type: 
  Country: None (occurrence: None)
  Receive Date: 20101007
  Receipt Date: 20101007
  Transmission Date: 20110411
  Serious: Yes (Hospitalization)
  Sender: FDA-Public Use
  Company Number: None

PATIENT

DRUGS (2)
  1. EFFEXOR [Suspect]
     Indication: DEPRESSION
  2. CYMBALTA [Suspect]
     Indication: DEPRESSION

REACTIONS (15)
  - ALOPECIA [None]
  - BLOOD CHOLESTEROL INCREASED [None]
  - CHILLS [None]
  - CRYING [None]
  - DELUSION [None]
  - DRUG WITHDRAWAL SYNDROME [None]
  - FATIGUE [None]
  - IRRITABILITY [None]
  - LOSS OF LIBIDO [None]
  - MALAISE [None]
  - MYALGIA [None]
  - PARAESTHESIA [None]
  - ROSACEA [None]
  - VERTIGO [None]
  - WEIGHT INCREASED [None]
